APPROVED DRUG PRODUCT: MUSE
Active Ingredient: ALPROSTADIL
Strength: 0.5MG
Dosage Form/Route: SUPPOSITORY;URETHRAL
Application: N020700 | Product #003
Applicant: VIATRIS SPECIALTY LLC
Approved: Nov 19, 1996 | RLD: Yes | RS: No | Type: DISCN